FAERS Safety Report 13240899 (Version 1)
Quarter: 2017Q1

REPORT INFORMATION
  Report Type: Spontaneous
  Country: US (occurrence: US)
  Receive Date: 20170216
  Receipt Date: 20170216
  Transmission Date: 20170428
  Serious: No
  Sender: FDA-Public Use
  Company Number: US-RELYPSA-RLY2016004141

PATIENT
  Age: 58 Year
  Sex: Male

DRUGS (12)
  1. ALDACTONE [Concomitant]
     Active Substance: SPIRONOLACTONE
  2. VELTASSA [Suspect]
     Active Substance: PATIROMER
     Indication: HYPERKALAEMIA
     Dosage: 8.4 G, QD
     Route: 048
     Dates: start: 201605, end: 201612
  3. HYDROCODONE BITARTRATE AND ACETAMINOPHEN [Concomitant]
     Active Substance: ACETAMINOPHEN\HYDROCODONE BITARTRATE
  4. ROCALTROL [Concomitant]
     Active Substance: CALCITRIOL
  5. COZAAR [Concomitant]
     Active Substance: LOSARTAN POTASSIUM
  6. LASIX [Concomitant]
     Active Substance: FUROSEMIDE
  7. NORVASC [Concomitant]
     Active Substance: AMLODIPINE BESYLATE
  8. CATAPRES                           /00171101/ [Concomitant]
     Active Substance: CLONIDINE
  9. VELTASSA [Suspect]
     Active Substance: PATIROMER
     Dosage: 8.4 G, TWICE WEEKLY
     Route: 048
     Dates: start: 201612
  10. COREG [Concomitant]
     Active Substance: CARVEDILOL
  11. FERROUS SULFATE. [Concomitant]
     Active Substance: FERROUS SULFATE
  12. OXYCODONE HYDROCHLORIDE. [Concomitant]
     Active Substance: OXYCODONE HYDROCHLORIDE

REACTIONS (1)
  - Inappropriate schedule of drug administration [Not Recovered/Not Resolved]

NARRATIVE: CASE EVENT DATE: 201612
